FAERS Safety Report 21128525 (Version 3)
Quarter: 2022Q3

REPORT INFORMATION
  Report Type: Other
  Country: CZ (occurrence: CZ)
  Receive Date: 20220725
  Receipt Date: 20220804
  Transmission Date: 20221026
  Serious: Yes (Death, Hospitalization)
  Sender: FDA-Public Use
  Company Number: CZ-BoehringerIngelheim-2022-BI-181730

PATIENT
  Age: 69 Year
  Sex: Male

DRUGS (1)
  1. ALTEPLASE [Suspect]
     Active Substance: ALTEPLASE
     Indication: Cerebrovascular accident
     Route: 042

REACTIONS (4)
  - Myocardial infarction [Fatal]
  - Cardiac arrest [Fatal]
  - Abdominal pain upper [Unknown]
  - Atrioventricular block complete [Unknown]
